FAERS Safety Report 6317514-X (Version None)
Quarter: 2009Q3

REPORT INFORMATION
  Report Type: 
  Country: None (occurrence: None)
  Receive Date: 20090821
  Receipt Date: 20090812
  Transmission Date: 20100115
  Serious: Yes (Other)
  Sender: FDA-Public Use
  Company Number: HQWYE085201MAR06

PATIENT
  Sex: Female
  Weight: 46.76 kg

DRUGS (3)
  1. PREMARIN [Suspect]
     Indication: MENOPAUSAL SYMPTOMS
  2. MEDROXYPROGESTERONE [Suspect]
  3. PROVERA [Suspect]

REACTIONS (1)
  - BREAST CANCER RECURRENT [None]
